FAERS Safety Report 5145163-8 (Version None)
Quarter: 2006Q4

REPORT INFORMATION
  Report Type: 
  Country: None (occurrence: None)
  Receive Date: 20061107
  Receipt Date: 20061026
  Transmission Date: 20070319
  Serious: Yes (Hospitalization)
  Sender: FDA-Public Use
  Company Number: GB-GILEAD-2006-0010539

PATIENT
  Age: 40 Year
  Sex: Female

DRUGS (4)
  1. TRUVADA [Suspect]
     Indication: HIV INFECTION
     Dates: start: 20060101
  2. ATAZANAVIR SULFATE [Suspect]
     Indication: HIV INFECTION
     Route: 048
     Dates: start: 20060608
  3. KALETRA [Suspect]
     Indication: HIV INFECTION
     Dates: start: 20010101
  4. RITONAVIR [Suspect]
     Indication: HIV INFECTION
     Dates: start: 20060608

REACTIONS (2)
  - CONDUCTION DISORDER [None]
  - PETIT MAL EPILEPSY [None]
